FAERS Safety Report 9204594 (Version 1)
Quarter: 2013Q1

REPORT INFORMATION
  Report Type: Spontaneous
  Country: GB (occurrence: None)
  Receive Date: 20130329
  Receipt Date: 20130329
  Transmission Date: 20140127
  Serious: Yes (Other)
  Sender: FDA-Public Use
  Company Number: AUR-APL-2013-02535

PATIENT
  Age: 50 Year
  Sex: Male
  Weight: 70 kg

DRUGS (3)
  1. RIBAVIRIN (RIBAVIRIN) [Suspect]
     Indication: HEPATITIS C
     Dosage: 1000MG, 1D, ORAL
     Route: 048
     Dates: start: 20120905, end: 20121122
  2. PEGINTERFERON ALFA-2A [Suspect]
     Indication: HEPATITIS C
     Dosage: 180MCG,1 IN 1 WK, SUBCUTANEOUS
     Route: 058
     Dates: start: 20120905, end: 20121122
  3. TELAPREVIR (TELAPREVIR) [Suspect]
     Indication: HEPATITIS C
     Dosage: 2250MG, 1 IN 1 D ORAL
     Route: 048
     Dates: start: 20121003, end: 20121022

REACTIONS (1)
  - Orchitis [None]
